FAERS Safety Report 12266211 (Version 1)
Quarter: 2016Q2

REPORT INFORMATION
  Report Type: Spontaneous
  Country: US (occurrence: None)
  Receive Date: 20160413
  Receipt Date: 20160413
  Transmission Date: 20160815
  Serious: No
  Sender: FDA-Public Use
  Company Number: None

PATIENT
  Age: 47 Year
  Sex: Female
  Weight: 120.2 kg

DRUGS (7)
  1. UNISOM SLEEPTABS [Suspect]
     Active Substance: DOXYLAMINE SUCCINATE
     Indication: SLEEP DISORDER
     Route: 048
     Dates: start: 20160407, end: 20160411
  2. ALBUTEROL. [Concomitant]
     Active Substance: ALBUTEROL
  3. UNISOM SLEEPTABS [Suspect]
     Active Substance: DOXYLAMINE SUCCINATE
  4. TEGRETOL [Concomitant]
     Active Substance: CARBAMAZEPINE
  5. IRON SUPPLEMENT [Concomitant]
     Active Substance: IRON
  6. MULTI VITAMIN [Concomitant]
     Active Substance: VITAMINS
  7. SLEEP AID [Concomitant]
     Active Substance: DIPHENHYDRAMINE HYDROCHLORIDE\DOXYLAMINE SUCCINATE

REACTIONS (1)
  - Asthma [None]

NARRATIVE: CASE EVENT DATE: 20160411
